FAERS Safety Report 25340685 (Version 1)
Quarter: 2025Q2

REPORT INFORMATION
  Report Type: Spontaneous
  Country: BE (occurrence: BE)
  Receive Date: 20250521
  Receipt Date: 20250521
  Transmission Date: 20250717
  Serious: Yes (Other)
  Sender: AMGEN
  Company Number: BE-UCBSA-2025029382

PATIENT
  Age: 64 Year
  Sex: Female

DRUGS (1)
  1. ROMOSOZUMAB [Suspect]
     Active Substance: ROMOSOZUMAB
     Indication: Osteoporosis
     Route: 065

REACTIONS (2)
  - Osteonecrosis [Unknown]
  - Drug ineffective [Unknown]
